FAERS Safety Report 5377158-3 (Version None)
Quarter: 2007Q3

REPORT INFORMATION
  Report Type: 
  Country: None (occurrence: None)
  Receive Date: 20070703
  Receipt Date: 20070621
  Transmission Date: 20080115
  Serious: Yes (Hospitalization)
  Sender: FDA-Public Use
  Company Number: US-ELI_LILLY_AND_COMPANY-US200706005043

PATIENT
  Age: 78 Year
  Sex: Female

DRUGS (3)
  1. HUMULIN N [Suspect]
     Indication: DIABETES MELLITUS
     Dosage: 42 U, UNK
     Dates: start: 19910101
  2. COUMADIN [Concomitant]
  3. ACTONEL [Concomitant]

REACTIONS (1)
  - BREAST CANCER [None]
